FAERS Safety Report 6459652-7 (Version None)
Quarter: 2009Q4

REPORT INFORMATION
  Report Type: 
  Country: None (occurrence: None)
  Receive Date: 20091127
  Receipt Date: 20091119
  Transmission Date: 20100525
  Serious: Yes (Other)
  Sender: FDA-Public Use
  Company Number: US-ABBOTT-09P-163-0609633-00

PATIENT
  Sex: Female
  Weight: 62.1 kg

DRUGS (5)
  1. ERYTHROMYCIN BASE [Suspect]
     Indication: ROSACEA
     Route: 065
     Dates: start: 20090321
  2. ERGOCALCIFEROL [Suspect]
     Indication: VITAMIN D DECREASED
     Route: 048
     Dates: start: 20090319, end: 20090319
  3. ERGOCALCIFEROL [Suspect]
     Indication: BLOOD CALCIUM DECREASED
  4. MINOCYCLINE HCL [Suspect]
     Indication: ROSACEA
     Route: 065
     Dates: start: 20090320, end: 20090320
  5. XANAX [Concomitant]
     Indication: DRUG USE FOR UNKNOWN INDICATION

REACTIONS (14)
  - ABDOMINAL PAIN [None]
  - APHAGIA [None]
  - BLOOD SODIUM INCREASED [None]
  - CHEST DISCOMFORT [None]
  - CHOKING SENSATION [None]
  - DIARRHOEA [None]
  - DYSPHAGIA [None]
  - DYSPNOEA [None]
  - EATING DISORDER [None]
  - PALPITATIONS [None]
  - PANIC ATTACK [None]
  - PHARYNGEAL OEDEMA [None]
  - SKIN DISORDER [None]
  - STEATORRHOEA [None]
